FAERS Safety Report 15392365 (Version 1)
Quarter: 2018Q3

REPORT INFORMATION
  Report Type: Spontaneous
  Country: US (occurrence: US)
  Receive Date: 20180911
  Receipt Date: 20180911
  Transmission Date: 20181010
  Serious: Yes (Hospitalization)
  Sender: FDA-Public Use
  Company Number: None

PATIENT
  Age: 62 Year
  Sex: Female
  Weight: 60.75 kg

DRUGS (12)
  1. XOLAIR [Suspect]
     Active Substance: OMALIZUMAB
     Indication: URTICARIA
     Dosage: ?          OTHER FREQUENCY:EVERY 4WEEKS;?
     Route: 030
     Dates: start: 20170330, end: 20180721
  2. METOPROLOL. [Concomitant]
     Active Substance: METOPROLOL
  3. COQ [Concomitant]
  4. IRBESARTAN. [Concomitant]
     Active Substance: IRBESARTAN
  5. CELEXA [Concomitant]
     Active Substance: CITALOPRAM HYDROBROMIDE
  6. MAGNESIUM [Concomitant]
     Active Substance: MAGNESIUM
  7. VITAMIN D3 [Concomitant]
     Active Substance: CHOLECALCIFEROL
  8. VITAMIN B2 [Concomitant]
     Active Substance: RIBOFLAVIN
  9. FISH OIL [Concomitant]
     Active Substance: FISH OIL
  10. ALLEGRA [Concomitant]
     Active Substance: FEXOFENADINE HYDROCHLORIDE
  11. AMLODIPINE [Concomitant]
     Active Substance: AMLODIPINE BESYLATE
  12. RED YEAST RICE [Concomitant]
     Active Substance: DIETARY SUPPLEMENT

REACTIONS (12)
  - Weight decreased [None]
  - Vision blurred [None]
  - Loss of consciousness [None]
  - Nausea [None]
  - Injection site pain [None]
  - Ear pain [None]
  - Gait inability [None]
  - Syncope [None]
  - Balance disorder [None]
  - Headache [None]
  - Dizziness [None]
  - Product quality issue [None]

NARRATIVE: CASE EVENT DATE: 20180720
